FAERS Safety Report 25348555 (Version 1)
Quarter: 2025Q2

REPORT INFORMATION
  Report Type: Spontaneous
  Country: GB (occurrence: GB)
  Receive Date: 20250522
  Receipt Date: 20250522
  Transmission Date: 20250717
  Serious: Yes (Death, Congenital Anomaly)
  Sender: AMGEN
  Company Number: GB-AMGEN-GBRSP2025099061

PATIENT

DRUGS (1)
  1. ADALIMUMAB [Suspect]
     Active Substance: ADALIMUMAB
     Indication: Exposure during pregnancy
     Dosage: 40 MILLIGRAM, Q2WK
     Route: 064
     Dates: start: 20190727

REACTIONS (5)
  - Lymphatic malformation [Fatal]
  - Holoprosencephaly [Fatal]
  - Diaphragmatic hernia [Fatal]
  - Renal disorder [Fatal]
  - Foetal exposure during pregnancy [Unknown]

NARRATIVE: CASE EVENT DATE: 20230926
